FAERS Safety Report 22006660 (Version 1)
Quarter: 2023Q1

REPORT INFORMATION
  Report Type: Other
  Country: None (occurrence: CN)
  Receive Date: 20230217
  Receipt Date: 20230217
  Transmission Date: 20230418
  Serious: Yes (Hospitalization, Other)
  Sender: FDA-Public Use
  Company Number: CN-Spectra Medical Devices, LLC-2138079

PATIENT
  Age: 24 Year
  Sex: Female

DRUGS (1)
  1. SODIUM CHLORIDE [Suspect]
     Active Substance: SODIUM CHLORIDE
     Indication: Hyponatraemia
     Route: 042

REACTIONS (3)
  - Osmotic demyelination syndrome [Recovered/Resolved]
  - Maternal exposure during pregnancy [Unknown]
  - Rapid correction of hyponatraemia [Recovered/Resolved]
